FAERS Safety Report 12727492 (Version 1)
Quarter: 2016Q3

REPORT INFORMATION
  Report Type: Report from Study
  Country: US (occurrence: US)
  Receive Date: 20160909
  Receipt Date: 20160909
  Transmission Date: 20161109
  Serious: Yes (Hospitalization, Other)
  Sender: FDA-Public Use
  Company Number: US-ROCHE-1031881

PATIENT
  Age: 68 Year
  Sex: Male
  Weight: 92.8 kg

DRUGS (4)
  1. LENALIDOMIDE [Suspect]
     Active Substance: LENALIDOMIDE
     Indication: PROSTATE CANCER METASTATIC
     Dosage: QD ON DAY 1-14
     Route: 048
     Dates: start: 20091019
  2. PREDNISONE. [Suspect]
     Active Substance: PREDNISONE
     Indication: PROSTATE CANCER METASTATIC
     Route: 048
     Dates: start: 20091019
  3. BEVACIZUMAB [Suspect]
     Active Substance: BEVACIZUMAB
     Indication: PROSTATE CANCER METASTATIC
     Dosage: OVER 30 -90 MIN ON DAY 1, LAST DOSE PRIOR TO SAE: 27/SEP/2011
     Route: 042
     Dates: start: 20091019
  4. DOCETAXEL. [Suspect]
     Active Substance: DOCETAXEL
     Indication: PROSTATE CANCER METASTATIC
     Dosage: OVER 60 MIN ON DAY 1
     Route: 042
     Dates: start: 20091019

REACTIONS (6)
  - Neutrophil count decreased [Unknown]
  - Osteonecrosis of jaw [Unknown]
  - Weight decreased [Unknown]
  - Atrial tachycardia [Unknown]
  - Ill-defined disorder [Recovered/Resolved]
  - Urinary tract infection [Unknown]

NARRATIVE: CASE EVENT DATE: 20100905
